FAERS Safety Report 11805568 (Version 1)
Quarter: 2015Q4

REPORT INFORMATION
  Report Type: Other
  Country: EG (occurrence: EG)
  Receive Date: 20151207
  Receipt Date: 20151207
  Transmission Date: 20160305
  Serious: Yes (Hospitalization)
  Sender: FDA-Public Use
  Company Number: EG-DEXPHARM-20152375

PATIENT
  Age: 2 Year
  Sex: Female

DRUGS (3)
  1. DICLOFENAC [Suspect]
     Active Substance: DICLOFENAC
  2. SULTAMICILLIN [Suspect]
     Active Substance: SULTAMICILLIN
  3. CEFOPERAZONE [Suspect]
     Active Substance: CEFOPERAZONE

REACTIONS (1)
  - Drug reaction with eosinophilia and systemic symptoms [Recovered/Resolved]
